FAERS Safety Report 26102479 (Version 1)
Quarter: 2025Q4

REPORT INFORMATION
  Report Type: Spontaneous
  Country: CL (occurrence: CL)
  Receive Date: 20251128
  Receipt Date: 20251128
  Transmission Date: 20260118
  Serious: Yes (Other)
  Sender: PFIZER
  Company Number: CL-PFIZER INC-PV202500138606

PATIENT
  Age: 59 Year
  Sex: Female

DRUGS (1)
  1. XELJANZ [Suspect]
     Active Substance: TOFACITINIB CITRATE
     Dosage: UNK

REACTIONS (2)
  - Pulmonary fibrosis [Unknown]
  - Arthritis [Unknown]
